FAERS Safety Report 4275497-0 (Version None)
Quarter: 2004Q1

REPORT INFORMATION
  Report Type: 
  Country: None (occurrence: None)
  Receive Date: 20040121
  Receipt Date: 20020531
  Transmission Date: 20041129
  Serious: Yes (Other)
  Sender: FDA-Public Use
  Company Number: CA-BRISTOL-MYERS SQUIBB COMPANY-11887841

PATIENT
  Age: 78 Year
  Sex: Male

DRUGS (10)
  1. GATIFLOXACIN [Suspect]
     Dosage: MOST RECENT DOSE PRIOR TO EVENT 19-MAY-2002
     Route: 048
     Dates: start: 20011206, end: 20020519
  2. ATORVASTATIN [Suspect]
     Dosage: MOST RECENT DOSE PRIOR TO EVENT 19-MAY-2002
     Route: 048
     Dates: start: 20011123
  3. NITRO PATCH [Concomitant]
     Dates: start: 20001201
  4. ASPIRIN [Concomitant]
     Dates: start: 19930101
  5. PERINDOPRIL [Concomitant]
     Dates: start: 19940101
  6. DILTIAZEM CD [Concomitant]
     Dates: start: 20000101
  7. CLOPIDOGREL BISULFATE [Concomitant]
     Dates: start: 20011101
  8. DOCUSATE SODIUM [Concomitant]
     Dates: start: 20011101
  9. HUMULIN N [Concomitant]
     Dosage: DOSAGE FORM = UNITS
     Dates: start: 19610101
  10. HUMULIN R [Concomitant]
     Dates: start: 19610101

REACTIONS (2)
  - DIABETES MELLITUS INADEQUATE CONTROL [None]
  - HYPOGLYCAEMIA [None]
